FAERS Safety Report 9922301 (Version 1)
Quarter: 2014Q1

REPORT INFORMATION
  Report Type: Spontaneous
  Country: JP (occurrence: JP)
  Receive Date: 20140225
  Receipt Date: 20140225
  Transmission Date: 20141002
  Serious: Yes (Other)
  Sender: FDA-Public Use
  Company Number: JP-GLAXOSMITHKLINE-B0971473A

PATIENT
  Sex: 0

DRUGS (3)
  1. SERETIDE (50MCG/250MCG) [Suspect]
     Indication: ASTHMA
     Route: 055
  2. ADRENOCORTICAL HORMONE PREPARATIONS [Concomitant]
     Route: 048
  3. UNKNOWN DRUG [Concomitant]
     Route: 048

REACTIONS (1)
  - Pneumonia [Unknown]
